FAERS Safety Report 13701355 (Version 1)
Quarter: 2017Q2

REPORT INFORMATION
  Report Type: Spontaneous
  Country: US (occurrence: US)
  Receive Date: 20170629
  Receipt Date: 20170629
  Transmission Date: 20170830
  Serious: No
  Sender: FDA-Public Use
  Company Number: US-ALLERGAN-1708913US

PATIENT
  Age: 62 Year
  Sex: Male
  Weight: 93.42 kg

DRUGS (2)
  1. EFFIENT [Concomitant]
     Active Substance: PRASUGREL HYDROCHLORIDE
     Indication: PRODUCT USED FOR UNKNOWN INDICATION
     Route: 065
  2. VIBERZI [Suspect]
     Active Substance: ELUXADOLINE
     Indication: IRRITABLE BOWEL SYNDROME
     Dosage: 75 MG, QD
     Route: 048

REACTIONS (7)
  - Flatulence [Not Recovered/Not Resolved]
  - Inappropriate schedule of drug administration [Unknown]
  - Amnesia [Recovered/Resolved]
  - Diarrhoea [Not Recovered/Not Resolved]
  - Chest discomfort [Recovered/Resolved]
  - Decreased appetite [Recovered/Resolved]
  - Abdominal pain upper [Not Recovered/Not Resolved]

NARRATIVE: CASE EVENT DATE: 20170306
